FAERS Safety Report 24693279 (Version 1)
Quarter: 2024Q4

REPORT INFORMATION
  Report Type: Spontaneous
  Country: CN (occurrence: CN)
  Receive Date: 20241203
  Receipt Date: 20241203
  Transmission Date: 20250114
  Serious: Yes (Other)
  Sender: BEIGENE
  Company Number: CN-BEIGENE-BGN-2024-019256

PATIENT

DRUGS (22)
  1. TISLELIZUMAB [Suspect]
     Active Substance: TISLELIZUMAB
     Indication: Lung neoplasm malignant
     Dosage: 200 MILLIGRAM
     Route: 041
     Dates: start: 20240810
  2. TISLELIZUMAB [Suspect]
     Active Substance: TISLELIZUMAB
     Dosage: 200 MILLIGRAM
     Route: 041
     Dates: start: 20240925
  3. PARAPLATIN [Suspect]
     Active Substance: CARBOPLATIN
     Indication: Lung neoplasm malignant
     Dosage: 457 MILLIGRAM
     Route: 041
     Dates: start: 20240810
  4. PARAPLATIN [Suspect]
     Active Substance: CARBOPLATIN
     Dosage: 480 MILLIGRAM
     Route: 041
     Dates: start: 20240925
  5. PACLITAXEL [Suspect]
     Active Substance: PACLITAXEL
     Indication: Lung neoplasm malignant
     Dosage: 398 MILLIGRAM
     Route: 041
     Dates: start: 20240810
  6. PACLITAXEL [Suspect]
     Active Substance: PACLITAXEL
     Dosage: 406 MILLIGRAM
     Route: 041
     Dates: start: 20240925
  7. EBASTINE [Concomitant]
     Active Substance: EBASTINE
     Indication: Allergy prophylaxis
     Dosage: 10 MILLIGRAM
     Route: 048
     Dates: start: 20240926, end: 20240926
  8. CELECOXIB [Concomitant]
     Active Substance: CELECOXIB
     Indication: Pyrexia
     Dosage: 0.2 GRAM
     Route: 048
     Dates: start: 20240926, end: 20240926
  9. CELECOXIB [Concomitant]
     Active Substance: CELECOXIB
     Indication: Pain
  10. OLOPATADINE HYDROCHLORIDE [Concomitant]
     Active Substance: OLOPATADINE HYDROCHLORIDE
     Indication: Hypersensitivity
     Dosage: 5 MILLIGRAM
     Route: 048
     Dates: start: 20240926, end: 20240926
  11. PALONOSETRON [Concomitant]
     Active Substance: PALONOSETRON
     Indication: Vomiting
     Dosage: 0.25 MILLIGRAM
     Dates: start: 20240925, end: 20240926
  12. YI SHEN BAO [Concomitant]
     Indication: Nutritional supplementation
     Dosage: 0.5 MILLIGRAM, TID
     Route: 048
     Dates: start: 20240926, end: 20240926
  13. Bo lu ding [Concomitant]
     Indication: Antiviral treatment
     Dosage: 0.5 MILLIGRAM
     Route: 048
     Dates: start: 20240926, end: 20240926
  14. Shu tan qing [Concomitant]
     Indication: Cough
     Dosage: 30 MILLIGRAM, TID
     Route: 048
     Dates: start: 20240926, end: 20240926
  15. Shu tan qing [Concomitant]
     Indication: Productive cough
  16. SODIUM CHLORIDE [Concomitant]
     Active Substance: SODIUM CHLORIDE
     Indication: Vehicle solution use
     Dosage: 150 MILLILITER
     Route: 041
     Dates: start: 20240925, end: 20241026
  17. SODIUM CHLORIDE [Concomitant]
     Active Substance: SODIUM CHLORIDE
     Dosage: 20 MILLILITER
     Dates: start: 20240925, end: 20240926
  18. METOCLOPRAMIDE [Concomitant]
     Active Substance: METOCLOPRAMIDE
     Indication: Allergy prophylaxis
     Dosage: 20 MILLIGRAM
     Route: 030
     Dates: start: 20240925, end: 20240926
  19. AI DUO [Concomitant]
     Indication: Myelosuppression
     Dosage: 6 MILLIGRAM
     Route: 058
     Dates: start: 20240925, end: 20240926
  20. FOSAPREPITANT DIMEGLUMINE [Concomitant]
     Active Substance: FOSAPREPITANT\FOSAPREPITANT DIMEGLUMINE
     Indication: Vomiting
     Dosage: 150 MILLIGRAM
     Route: 041
     Dates: start: 20240925, end: 20241026
  21. ESOMEPRAZOLE SODIUM [Concomitant]
     Active Substance: ESOMEPRAZOLE SODIUM
     Indication: Prophylaxis
     Dosage: 40 MILLIGRAM
     Dates: start: 20240925, end: 20240926
  22. MOMETASONE [Concomitant]
     Active Substance: MOMETASONE
     Indication: Rash
     Dosage: 0.5 GRAM
     Route: 061
     Dates: start: 20240925, end: 20240926

REACTIONS (4)
  - Myelosuppression [Recovering/Resolving]
  - Hypoaesthesia [Unknown]
  - Oedema peripheral [Unknown]
  - Pruritus [Unknown]

NARRATIVE: CASE EVENT DATE: 20240101
